FAERS Safety Report 7400971-5 (Version None)
Quarter: 2011Q2

REPORT INFORMATION
  Report Type: 
  Country: None (occurrence: None)
  Receive Date: 20110407
  Receipt Date: 20110325
  Transmission Date: 20111010
  Serious: Yes (Other)
  Sender: FDA-Public Use
  Company Number: PHHY2011US22563

PATIENT
  Sex: Female

DRUGS (2)
  1. ZOMETA [Suspect]
     Indication: OSTEOPENIA
     Dosage: EVERY 6 MONTHS
     Route: 042
     Dates: end: 20110316
  2. AROMASIN [Concomitant]
     Indication: BREAST CANCER

REACTIONS (2)
  - GINGIVAL DISORDER [None]
  - TOOTH LOSS [None]
